FAERS Safety Report 10246690 (Version 1)
Quarter: 2014Q2

REPORT INFORMATION
  Report Type: Spontaneous
  Country: US (occurrence: US)
  Receive Date: 20140619
  Receipt Date: 20140619
  Transmission Date: 20141212
  Serious: No
  Sender: FDA-Public Use
  Company Number: US-009507513-1406USA008857

PATIENT
  Age: 23 Year
  Sex: Female

DRUGS (4)
  1. ISENTRESS [Suspect]
     Dosage: 800 TOTAL DAILY DOSE
     Route: 048
  2. LAMIVUDINE (+) ZIDOVUDINE [Suspect]
     Dosage: TOTAL DAILY DOSE: 2
     Route: 048
  3. ZIDOVUDINE [Suspect]
     Dosage: TOTAL DAILY DOSE: 1
     Route: 042
  4. ZIDOVUDINE [Suspect]
     Dosage: TOTAL DAILY DOSE: 2
     Route: 042

REACTIONS (1)
  - Exposure during pregnancy [Unknown]
